FAERS Safety Report 13425383 (Version 4)
Quarter: 2017Q2

REPORT INFORMATION
  Report Type: Report from Study
  Country: CN (occurrence: CN)
  Receive Date: 20170411
  Receipt Date: 20170628
  Transmission Date: 20170830
  Serious: No
  Sender: FDA-Public Use
  Company Number: CN-ROCHE-1918524

PATIENT
  Sex: Male
  Weight: 66 kg

DRUGS (1)
  1. AVASTIN [Suspect]
     Active Substance: BEVACIZUMAB
     Indication: NON-SMALL CELL LUNG CANCER
     Route: 041
     Dates: start: 20160913

REACTIONS (4)
  - Hypertension [Recovering/Resolving]
  - Nasal mucosal erosion [Unknown]
  - Epistaxis [Unknown]
  - Nasal obstruction [Unknown]
